FAERS Safety Report 19781301 (Version 3)
Quarter: 2021Q4

REPORT INFORMATION
  Report Type: Spontaneous
  Country: PT (occurrence: PT)
  Receive Date: 20210902
  Receipt Date: 20211004
  Transmission Date: 20220304
  Serious: Yes (Hospitalization)
  Sender: FDA-Public Use
  Company Number: NVSC2021PT196836

PATIENT
  Age: 23 Year
  Sex: Male

DRUGS (5)
  1. CIPROFLOXACIN HYDROCHLORIDE [Suspect]
     Active Substance: CIPROFLOXACIN HYDROCHLORIDE
     Indication: Upper respiratory tract infection
     Dosage: UNK, UNKNOWN
     Route: 065
  2. PANTOPRAZOLE [Suspect]
     Active Substance: PANTOPRAZOLE
     Indication: Henoch-Schonlein purpura
     Dosage: UNK, UNKNOWN
     Route: 065
  3. SUCRALFATE [Suspect]
     Active Substance: SUCRALFATE
     Indication: Product used for unknown indication
     Dosage: UNK, UNKNOWN
     Route: 065
  4. BUTYLSCOPOLAMINE [Suspect]
     Active Substance: BUTYLSCOPOLAMINE
     Indication: Product used for unknown indication
     Dosage: UNK, UNKNOWN
     Route: 065
  5. BUTYLSCOPOLAMINE BROMIDE\METAMIZOLE SODIUM [Suspect]
     Active Substance: BUTYLSCOPOLAMINE BROMIDE\METAMIZOLE SODIUM
     Indication: Product used for unknown indication
     Dosage: UNK, UNKNOWN
     Route: 065

REACTIONS (2)
  - Henoch-Schonlein purpura [Recovered/Resolved]
  - Drug ineffective [Unknown]
